FAERS Safety Report 7104834-4 (Version None)
Quarter: 2010Q4

REPORT INFORMATION
  Report Type: 
  Country: None (occurrence: None)
  Receive Date: 20101116
  Receipt Date: 20101104
  Transmission Date: 20110411
  Serious: Yes (Hospitalization)
  Sender: FDA-Public Use
  Company Number: FR-JNJFOC-20101101799

PATIENT
  Age: 71 Year
  Sex: Male

DRUGS (3)
  1. TAVANIC [Suspect]
     Indication: LEGIONELLA INFECTION
     Route: 065
  2. HEPARINE CHOAY [Suspect]
     Indication: ILL-DEFINED DISORDER
     Route: 042
  3. RIFAMPICIN [Suspect]
     Indication: LEGIONELLA INFECTION
     Route: 065

REACTIONS (4)
  - CHOLESTASIS [None]
  - CYTOLYTIC HEPATITIS [None]
  - HYPERBILIRUBINAEMIA [None]
  - THROMBOCYTOPENIA [None]
